FAERS Safety Report 10737299 (Version 2)
Quarter: 2015Q1

REPORT INFORMATION
  Report Type: Spontaneous
  Country: JP (occurrence: None)
  Receive Date: 20150122
  Receipt Date: 20150211
  Transmission Date: 20150721
  Serious: Yes (Hospitalization)
  Sender: FDA-Public Use
  Company Number: 2015BCR00003

PATIENT
  Age: 88 Year
  Sex: Female

DRUGS (16)
  1. FAMOTIDINE (FAMOTIDINE) [Suspect]
     Active Substance: FAMOTIDINE
     Indication: GASTRIC DISORDER
     Route: 042
     Dates: start: 20150104, end: 20150105
  2. TRAZENTA (LINAGLIPTIN) [Concomitant]
  3. CLINORIL (SULINDAC) [Concomitant]
  4. CEFTRIAXONE SODIUM. [Suspect]
     Active Substance: CEFTRIAXONE SODIUM
     Indication: PNEUMONIA
     Route: 042
     Dates: start: 20150104, end: 20150105
  5. WARFARIN (WARFARIN POTASSIUM) [Concomitant]
  6. FEBURIC (FEBUXOSTAT) [Concomitant]
     Active Substance: FEBUXOSTAT
  7. WARFARIN K (WARFARIN POTASSIUM) [Concomitant]
  8. RAPIACTA [Suspect]
     Active Substance: PERAMIVIR
     Indication: INFLUENZA
     Route: 042
     Dates: start: 20150103, end: 20150103
  9. LUPRAC (TORASEMIDE) [Concomitant]
     Active Substance: TORSEMIDE
  10. LASIX [Concomitant]
     Active Substance: FUROSEMIDE
  11. OMEPRAZOLE (OMEPRAZOLE) [Concomitant]
     Active Substance: OMEPRAZOLE
  12. BROTIZOLAM OD (BROTIZOLAM) [Concomitant]
  13. AMLODIPINE OD (AMLODIPINE BESILATE) [Concomitant]
  14. MICARDIS [Concomitant]
     Active Substance: TELMISARTAN
  15. FLUITRAN (TRICHLORMETHIAZIDE) [Concomitant]
  16. FERROMIA (SODIUM FERROUS CITRATE) [Concomitant]

REACTIONS (3)
  - Aspartate aminotransferase increased [None]
  - Hepatic function abnormal [None]
  - Alanine aminotransferase increased [None]

NARRATIVE: CASE EVENT DATE: 20150105
